FAERS Safety Report 10869889 (Version 1)
Quarter: 2015Q1

REPORT INFORMATION
  Report Type: Spontaneous
  Country: US (occurrence: US)
  Receive Date: 20150226
  Receipt Date: 20150226
  Transmission Date: 20150721
  Serious: No
  Sender: FDA-Public Use
  Company Number: US-PFIZER INC-2015005876

PATIENT
  Age: 65 Year
  Sex: Female

DRUGS (19)
  1. ZAROXOLYN [Concomitant]
     Active Substance: METOLAZONE
     Dosage: 5 MG, ALTERNATE DAY (TAKE 5 MG BY MOUTH EVERY  MONDAY, WEDNESDAY, FRIDAY)
     Route: 048
  2. VITAMIN D [Concomitant]
     Active Substance: CHOLECALCIFEROL
     Dosage: 50000 IU, WEEKLY
     Route: 048
  3. LANTUS [Concomitant]
     Active Substance: INSULIN GLARGINE
     Dosage: 50 IU, 1X/DAY (INJECT 50 UNITS INTO THE SKIN NIGHTLY)
     Route: 058
  4. OXYIR [Concomitant]
     Active Substance: OXYCODONE HYDROCHLORIDE
     Indication: PAIN
     Dosage: 20 MG, 4X/DAY (10 MG TAKE 2 TABLETS BY MOUTH 4 TIMES DAILY AS NEEDED)
     Route: 048
  5. KLOR-CON [Concomitant]
     Active Substance: POTASSIUM CHLORIDE
     Dosage: UNK, 2X/DAY
     Route: 048
  6. BUMEX [Concomitant]
     Active Substance: BUMETANIDE
     Dosage: 2 MG, 2X/DAY
     Route: 048
  7. NOVOLOG [Concomitant]
     Active Substance: INSULIN ASPART
     Dosage: 15 IU, AS NEEDED (INJECT 15 UNITS INTO THE SKIN AS NEEDED)
     Route: 058
  8. REMERON [Concomitant]
     Active Substance: MIRTAZAPINE
     Dosage: 30 MG, DAILY
  9. PRAVACHOL [Concomitant]
     Active Substance: PRAVASTATIN SODIUM
     Dosage: 20 MG, 1X/DAY (TAKE 1 TABLET BY MOUTH NIGHTLY)
     Route: 048
  10. DESYREL [Concomitant]
     Active Substance: TRAZODONE HYDROCHLORIDE
     Dosage: 200 MG, 1X/DAY (TAKE TWO TABLETS BY MOUTH EVERY NIGHT AT BEDTIME)
     Route: 048
  11. AMBIEN [Concomitant]
     Active Substance: ZOLPIDEM TARTRATE
     Indication: INSOMNIA
     Dosage: 5 MG, 1X/DAY (TAKE ONE TABLET BY MOUTH NIGHTLY AS NEEDED)
     Route: 048
  12. COREG [Concomitant]
     Active Substance: CARVEDILOL
     Dosage: 6.25 MG, 2X/DAY (TAKE ONE TABLET BY MOUTH TWICE A DAY)
     Route: 048
  13. VITAMIN D2 [Concomitant]
     Active Substance: ERGOCALCIFEROL
     Dosage: 1.25 MG, WEEKLY (TAKE 1.25 MG BY MOUTH ONCE A WEEK)
     Route: 048
  14. LYRICA [Suspect]
     Active Substance: PREGABALIN
     Dosage: 150 MG, 2X/DAY
     Route: 048
  15. ATIVAN [Concomitant]
     Active Substance: LORAZEPAM
     Indication: ANXIETY
     Dosage: 1 MG, 3X/DAY (TAKE ONE TABLET BY MOUTH EVERY 8 HOURS AS NEEDED)
     Route: 048
  16. ASPIRIN. [Concomitant]
     Active Substance: ASPIRIN
     Dosage: 81 MG, DAILY
     Route: 048
  17. CARAFATE [Concomitant]
     Active Substance: SUCRALFATE
     Dosage: 10 ML, 4X/DAY
     Route: 048
  18. PEPCID [Concomitant]
     Active Substance: FAMOTIDINE
     Indication: ABDOMINAL DISCOMFORT
     Dosage: 20 MG, 2X/DAY TAKE ONE TABLET BY MOUTH TWICE A DAY)
     Route: 048
  19. FERROUS SULFATE [Concomitant]
     Active Substance: FERROUS SULFATE\FERROUS SULFATE, DRIED
     Dosage: 325 MG, 3X/DAY (TAKE 325 MG BY MOUTH 3 TIMES DAILY)
     Route: 048

REACTIONS (1)
  - Somnolence [Unknown]
